FAERS Safety Report 8996309 (Version 1)
Quarter: 2013Q1

REPORT INFORMATION
  Report Type: Report from Study
  Country: SE (occurrence: SE)
  Receive Date: 20130103
  Receipt Date: 20130103
  Transmission Date: 20140127
  Serious: Yes (Hospitalization)
  Sender: FDA-Public Use
  Company Number: SE-BRISTOL-MYERS SQUIBB COMPANY-17258963

PATIENT
  Sex: Female

DRUGS (2)
  1. CETUXIMAB [Suspect]
     Indication: CERVIX CARCINOMA
  2. CISPLATIN [Suspect]
     Indication: CERVIX CARCINOMA

REACTIONS (3)
  - Pulmonary embolism [Unknown]
  - Dyspnoea [Unknown]
  - Hypotension [Unknown]
